FAERS Safety Report 6342250-3 (Version None)
Quarter: 2009Q3

REPORT INFORMATION
  Report Type: 
  Country: None (occurrence: None)
  Receive Date: 20090903
  Receipt Date: 20090903
  Transmission Date: 20100115
  Serious: Yes (Hospitalization)
  Sender: FDA-Public Use
  Company Number: None

PATIENT
  Age: 71 Year
  Sex: Male

DRUGS (2)
  1. ETODOLAC [Suspect]
     Indication: PAIN
     Dosage: 300 MG BID PO
     Route: 048
     Dates: start: 20070918, end: 20090723
  2. ASPIRIN [Suspect]
     Dosage: 81 MG EVERY DAY PO
     Route: 048
     Dates: start: 20050819, end: 20090723

REACTIONS (6)
  - ANAEMIA [None]
  - ARTERIOVENOUS MALFORMATION [None]
  - FATIGUE [None]
  - LOWER GASTROINTESTINAL HAEMORRHAGE [None]
  - NEOPLASM [None]
  - RECTAL HAEMORRHAGE [None]
